FAERS Safety Report 5817537-0 (Version None)
Quarter: 2008Q3

REPORT INFORMATION
  Report Type: 
  Country: None (occurrence: None)
  Receive Date: 20080722
  Receipt Date: 20080711
  Transmission Date: 20090109
  Serious: Yes (Hospitalization, Disabling, Other)
  Sender: FDA-Public Use
  Company Number: US-MERCK-0803USA04520

PATIENT
  Age: 54 Year
  Sex: Female
  Weight: 75 kg

DRUGS (7)
  1. FOSAMAX [Suspect]
     Indication: OSTEOPOROSIS
     Route: 048
     Dates: start: 20020129, end: 20060416
  2. FOSAMAX PLUS D [Suspect]
     Indication: OSTEOPOROSIS
     Route: 048
     Dates: start: 20060417, end: 20070524
  3. FOSAMAX PLUS D [Suspect]
     Route: 048
     Dates: start: 20070801
  4. HORMONES (UNSPECIFIED) [Concomitant]
     Route: 065
     Dates: start: 19950216
  5. FUROSEMIDE [Concomitant]
     Route: 065
     Dates: start: 19990716
  6. SYNTHROID [Concomitant]
     Indication: HYPOTHYROIDISM
     Route: 065
     Dates: start: 20010914, end: 20040501
  7. ALBUTEROL [Concomitant]
     Indication: CHRONIC OBSTRUCTIVE PULMONARY DISEASE
     Route: 065
     Dates: start: 19970428

REACTIONS (42)
  - ANAEMIA OF CHRONIC DISEASE [None]
  - ANXIETY [None]
  - ARTHRALGIA [None]
  - ARTHROPATHY [None]
  - BRONCHITIS [None]
  - BRONCHITIS CHRONIC [None]
  - CARDIOMEGALY [None]
  - CONFUSIONAL STATE [None]
  - CONJUNCTIVITIS ALLERGIC [None]
  - DENTAL CARIES [None]
  - DEPRESSION [None]
  - DRUG TOXICITY [None]
  - EXCORIATION [None]
  - EXOSTOSIS [None]
  - FATIGUE [None]
  - GASTRIC DISORDER [None]
  - HALLUCINATION [None]
  - HEADACHE [None]
  - HYPERTENSION [None]
  - HYPOKALAEMIA [None]
  - INJURY [None]
  - INTENTIONAL SELF-INJURY [None]
  - MUSCULOSKELETAL PAIN [None]
  - MYOCLONUS [None]
  - NAUSEA [None]
  - OBSESSIVE-COMPULSIVE DISORDER [None]
  - OEDEMA PERIPHERAL [None]
  - ORAL CANDIDIASIS [None]
  - OSTEOMYELITIS [None]
  - OSTEONECROSIS [None]
  - OVERDOSE [None]
  - PYELONEPHRITIS [None]
  - RESORPTION BONE INCREASED [None]
  - RHEUMATOID ARTHRITIS [None]
  - RHINITIS [None]
  - SCOLIOSIS [None]
  - THERAPEUTIC AGENT TOXICITY [None]
  - TOOTH ABSCESS [None]
  - TOOTH FRACTURE [None]
  - TOOTH LOSS [None]
  - URINARY TRACT INFECTION [None]
  - WEIGHT DECREASED [None]
